FAERS Safety Report 12302242 (Version 1)
Quarter: 2016Q2

REPORT INFORMATION
  Report Type: Spontaneous
  Country: US (occurrence: US)
  Receive Date: 20160425
  Receipt Date: 20160425
  Transmission Date: 20160815
  Serious: Yes (Other)
  Sender: FDA-Public Use
  Company Number: US-BAYER-2016-076368

PATIENT
  Sex: Male
  Weight: 113.38 kg

DRUGS (2)
  1. ALKA-SELTZER PLUS COLD FORMULA [Suspect]
     Active Substance: ASPIRIN\CHLORPHENIRAMINE MALEATE\PHENYLEPHRINE BITARTRATE
     Indication: DYSPEPSIA
     Dosage: 2 DF, UNK
     Route: 048
     Dates: end: 201603
  2. PALIPERIDONE. [Concomitant]
     Active Substance: PALIPERIDONE
     Dosage: UNK

REACTIONS (3)
  - Expired product administered [None]
  - Renal failure [None]
  - Product use issue [None]
